FAERS Safety Report 14599157 (Version 1)
Quarter: 2018Q1

REPORT INFORMATION
  Report Type: Spontaneous
  Country: US (occurrence: US)
  Receive Date: 20180303
  Receipt Date: 20180303
  Transmission Date: 20180509
  Serious: Yes (Other)
  Sender: FDA-Public Use
  Company Number: None

PATIENT
  Age: 72 Year
  Sex: Male

DRUGS (2)
  1. EYLEA [Suspect]
     Active Substance: AFLIBERCEPT
     Indication: NEOVASCULAR AGE-RELATED MACULAR DEGENERATION
     Dosage: ?          OTHER FREQUENCY:MONTHLY;?
     Route: 031
     Dates: start: 20171211, end: 20180219
  2. EYLEA [Concomitant]
     Active Substance: AFLIBERCEPT
     Dates: start: 20171211, end: 20180219

REACTIONS (2)
  - Eye inflammation [None]
  - Vitritis [None]

NARRATIVE: CASE EVENT DATE: 20180219
